FAERS Safety Report 7996928-6 (Version None)
Quarter: 2011Q4

REPORT INFORMATION
  Report Type: 
  Country: None (occurrence: None)
  Receive Date: 20111216
  Receipt Date: 20111209
  Transmission Date: 20120403
  Serious: Yes (Death, Hospitalization)
  Sender: FDA-Public Use
  Company Number: 127411

PATIENT
  Age: 15 Month
  Sex: Male

DRUGS (2)
  1. THIOTEPA [Suspect]
     Indication: BRAIN NEOPLASM MALIGNANT
  2. CARBOPLATIN [Suspect]
     Indication: BRAIN NEOPLASM MALIGNANT

REACTIONS (2)
  - LEUKOENCEPHALOPATHY [None]
  - ASPIRATION [None]
